FAERS Safety Report 25611898 (Version 2)
Quarter: 2025Q4

REPORT INFORMATION
  Report Type: Spontaneous
  Country: CO (occurrence: CO)
  Receive Date: 20250728
  Receipt Date: 20251028
  Transmission Date: 20260118
  Serious: Yes (Other)
  Sender: REGENERON
  Company Number: CO-BAYER-2025A099850

PATIENT
  Sex: Male

DRUGS (1)
  1. EYLEA [Suspect]
     Active Substance: AFLIBERCEPT
     Indication: Macular degeneration
     Dosage: 40 MG, Q1MON, SOLUTION FOR INJECTION IN PRE-FILLED SYRINGE, 40 MG/ML
     Route: 031

REACTIONS (3)
  - Intraocular lens implant [Unknown]
  - Visual impairment [Unknown]
  - Metamorphopsia [Unknown]

NARRATIVE: CASE EVENT DATE: 20250101
